FAERS Safety Report 25156691 (Version 1)
Quarter: 2025Q2

REPORT INFORMATION
  Report Type: Spontaneous
  Country: US (occurrence: US)
  Receive Date: 20250403
  Receipt Date: 20250403
  Transmission Date: 20250717
  Serious: No
  Sender: SANOFI AVENTIS
  Company Number: US-SANOFI-02471226

PATIENT
  Age: 75 Year
  Sex: Female

DRUGS (1)
  1. LOVENOX [Suspect]
     Active Substance: ENOXAPARIN SODIUM
     Indication: Cerebrovascular accident
     Dosage: 100 MG, QD

REACTIONS (3)
  - Injection site bruising [Unknown]
  - Haematoma [Unknown]
  - Product use in unapproved indication [Unknown]
